FAERS Safety Report 22932512 (Version 6)
Quarter: 2024Q1

REPORT INFORMATION
  Report Type: Spontaneous
  Country: US (occurrence: US)
  Receive Date: 20230912
  Receipt Date: 20240322
  Transmission Date: 20240409
  Serious: No
  Sender: FDA-Public Use
  Company Number: US-SA-SAC20230907000742

PATIENT
  Age: 49 Year
  Sex: Female

DRUGS (3)
  1. DUPIXENT [Suspect]
     Active Substance: DUPILUMAB
     Indication: Dermatitis atopic
     Dosage: 600 MG, 1X
     Route: 058
     Dates: start: 20230824, end: 20230824
  2. DUPIXENT [Suspect]
     Active Substance: DUPILUMAB
     Dosage: 300 MG, QOW
     Route: 058
     Dates: start: 202309
  3. REXULTI [Concomitant]
     Active Substance: BREXPIPRAZOLE

REACTIONS (20)
  - Nasal congestion [Unknown]
  - Nasopharyngitis [Not Recovered/Not Resolved]
  - Oropharyngeal pain [Not Recovered/Not Resolved]
  - Headache [Unknown]
  - Dyskinesia [Unknown]
  - Pain [Unknown]
  - Skin lesion [Unknown]
  - Infection [Unknown]
  - Injection site discolouration [Unknown]
  - Illness [Not Recovered/Not Resolved]
  - Neurodermatitis [Unknown]
  - Skin infection [Unknown]
  - Sensitive skin [Unknown]
  - Condition aggravated [Unknown]
  - Alopecia [Unknown]
  - Influenza like illness [Unknown]
  - Injection site hypoaesthesia [Unknown]
  - Pain of skin [Unknown]
  - Skin burning sensation [Not Recovered/Not Resolved]
  - Injection site bruising [Unknown]

NARRATIVE: CASE EVENT DATE: 20230101
